FAERS Safety Report 7908690-3 (Version None)
Quarter: 2011Q4

REPORT INFORMATION
  Report Type: 
  Country: None (occurrence: None)
  Receive Date: 20111111
  Receipt Date: 20111107
  Transmission Date: 20120403
  Serious: Yes (Other)
  Sender: FDA-Public Use
  Company Number: PHHY2011BR097572

PATIENT
  Sex: Female

DRUGS (5)
  1. GALVUS [Suspect]
     Dosage: UNK UKN, UNK
  2. ALDACTONE [Concomitant]
     Dosage: UNK UKN, UNK
  3. METOPROLOL SUCCINATE [Concomitant]
     Dosage: UNK UKN, UNK
  4. INDAPAMIDE [Concomitant]
     Dosage: UNK UKN, UNK
  5. EXFORGE [Suspect]
     Indication: HYPERTENSION
     Dosage: 1 DF (320/10 MG), UNK

REACTIONS (3)
  - GENERALISED OEDEMA [None]
  - SWELLING [None]
  - GAIT DISTURBANCE [None]
